FAERS Safety Report 5091453-7 (Version None)
Quarter: 2006Q3

REPORT INFORMATION
  Report Type: 
  Country: None (occurrence: None)
  Receive Date: 20060829
  Receipt Date: 20060817
  Transmission Date: 20061208
  Serious: Yes (Other)
  Sender: FDA-Public Use
  Company Number: US-GILEAD-2006-0010068

PATIENT
  Sex: Female

DRUGS (5)
  1. TRUVADA [Suspect]
     Indication: HIV INFECTION
     Route: 048
     Dates: start: 20060122, end: 20060415
  2. INVIRASE [Suspect]
     Indication: HIV INFECTION
     Route: 048
     Dates: start: 20060131, end: 20060405
  3. LITHIUM CARBONATE [Suspect]
     Indication: BIPOLAR DISORDER
     Route: 048
     Dates: start: 20051115, end: 20060415
  4. NORVIR [Concomitant]
     Indication: HIV INFECTION
     Dates: start: 20060131, end: 20060415
  5. RETROVIR [Concomitant]
     Indication: HIV INFECTION
     Dates: start: 20060122, end: 20060415

REACTIONS (5)
  - HYPOKALAEMIA [None]
  - NEPHRITIS INTERSTITIAL [None]
  - NEPHROGENIC DIABETES INSIPIDUS [None]
  - OVERDOSE [None]
  - RENAL TUBULAR DISORDER [None]
